FAERS Safety Report 6774880-9 (Version None)
Quarter: 2010Q2

REPORT INFORMATION
  Report Type: 
  Country: None (occurrence: None)
  Receive Date: 20100616
  Receipt Date: 20100616
  Transmission Date: 20101027
  Serious: Yes (Hospitalization, Other)
  Sender: FDA-Public Use
  Company Number: None

PATIENT
  Age: 21 Year
  Sex: Female
  Weight: 52.1637 kg

DRUGS (1)
  1. MIRENA [Suspect]
     Indication: CONTRACEPTION
     Dosage: INTRA-UTERINE
     Route: 015
     Dates: start: 20091015, end: 20100430

REACTIONS (7)
  - COMPLICATION OF DEVICE REMOVAL [None]
  - EMOTIONAL DISTRESS [None]
  - FUNGAL INFECTION [None]
  - MENORRHAGIA [None]
  - SCAR [None]
  - SURGICAL PROCEDURE REPEATED [None]
  - URINARY TRACT INFECTION [None]
